FAERS Safety Report 11311631 (Version 3)
Quarter: 2015Q3

REPORT INFORMATION
  Report Type: Report from Study
  Country: US (occurrence: US)
  Receive Date: 20150727
  Receipt Date: 20150908
  Transmission Date: 20151125
  Serious: Yes (Other)
  Sender: FDA-Public Use
  Company Number: US-AMGEN-USASP2015072335

PATIENT
  Age: 76 Year
  Sex: Female

DRUGS (1)
  1. ENBREL [Suspect]
     Active Substance: ETANERCEPT
     Indication: RHEUMATOID ARTHRITIS
     Dosage: 50 MG, QWK
     Route: 065
     Dates: start: 20150630, end: 2015

REACTIONS (9)
  - Nasal inflammation [Not Recovered/Not Resolved]
  - Peripheral swelling [Unknown]
  - Bedridden [Unknown]
  - Hyperaesthesia [Not Recovered/Not Resolved]
  - Feeling abnormal [Unknown]
  - Lip swelling [Not Recovered/Not Resolved]
  - Rhinalgia [Not Recovered/Not Resolved]
  - Swelling face [Unknown]
  - Chapped lips [Not Recovered/Not Resolved]

NARRATIVE: CASE EVENT DATE: 201507
